FAERS Safety Report 8756120 (Version 2)
Quarter: 2012Q4

REPORT INFORMATION
  Report Type: 
  Country: US (occurrence: US)
  Receive Date: 20120828
  Receipt Date: 20120913
  Transmission Date: 20130627
  Serious: No
  Sender: FDA-Public Use
  Company Number: US-PFIZER INC-2012208811

PATIENT
  Age: 58 Year
  Sex: Male

DRUGS (2)
  1. CHANTIX [Suspect]
     Indication: SMOKING CESSATION THERAPY
     Dosage: UNK
     Route: 048
     Dates: start: 2010, end: 2010
  2. METFORMIN [Concomitant]
     Indication: BLOOD GLUCOSE INCREASED
     Dosage: 50 mg, 2x/day

REACTIONS (3)
  - Nausea [Unknown]
  - Abnormal dreams [Unknown]
  - Irritability [Unknown]
